FAERS Safety Report 24174703 (Version 2)
Quarter: 2024Q3

REPORT INFORMATION
  Report Type: Spontaneous
  Country: US (occurrence: US)
  Receive Date: 20240805
  Receipt Date: 20240807
  Transmission Date: 20241017
  Serious: Yes (Other)
  Sender: PFIZER
  Company Number: US-PFIZER INC-PV202400099851

PATIENT
  Age: 39 Year
  Sex: Male

DRUGS (2)
  1. METHYLPREDNISOLONE SODIUM SUCCINATE [Suspect]
     Active Substance: METHYLPREDNISOLONE SODIUM SUCCINATE
     Indication: Sciatica
     Dosage: 80 MG, SINGLE
     Route: 008
  2. BUPIVACAINE HYDROCHLORIDE [Concomitant]
     Active Substance: BUPIVACAINE HYDROCHLORIDE
     Indication: Epidural anaesthesia
     Dosage: 20 ML OF 0.125% BUPIVACAINE
     Route: 008

REACTIONS (4)
  - Off label use [Recovered/Resolved with Sequelae]
  - Blindness transient [Recovered/Resolved with Sequelae]
  - Off label use [Unknown]
  - Drug effective for unapproved indication [Unknown]
